FAERS Safety Report 16638923 (Version 4)
Quarter: 2019Q4

REPORT INFORMATION
  Report Type: Report from Study
  Country: None (occurrence: US)
  Receive Date: 20190726
  Receipt Date: 20191227
  Transmission Date: 20200122
  Serious: Yes (Other)
  Sender: FDA-Public Use
  Company Number: US-ABBVIE-19K-163-2866254-00

PATIENT
  Sex: Male
  Weight: 39.04 kg

DRUGS (4)
  1. HUMIRA [Suspect]
     Active Substance: ADALIMUMAB
     Indication: CROHN^S DISEASE
     Route: 058
     Dates: start: 201705, end: 20190410
  2. HUMIRA [Suspect]
     Active Substance: ADALIMUMAB
     Route: 058
     Dates: start: 20190514
  3. METHOTREXATE. [Concomitant]
     Active Substance: METHOTREXATE
     Indication: INFLAMMATION
     Route: 065
  4. METHOTREXATE. [Concomitant]
     Active Substance: METHOTREXATE
     Indication: CROHN^S DISEASE

REACTIONS (4)
  - Small intestinal obstruction [Unknown]
  - Weight increased [Unknown]
  - Headache [Unknown]
  - Neoplasm malignant [Unknown]
